FAERS Safety Report 24321725 (Version 1)
Quarter: 2024Q3

REPORT INFORMATION
  Report Type: Spontaneous
  Country: US (occurrence: US)
  Receive Date: 20240916
  Receipt Date: 20240916
  Transmission Date: 20241016
  Serious: Yes (Other)
  Sender: BLUEPRINT MEDICINES
  Company Number: US-BLUEPRINT MEDICINES CORPORATION-2024BUS004488

PATIENT

DRUGS (1)
  1. GAVRETO [Suspect]
     Active Substance: PRALSETINIB
     Indication: Lung neoplasm malignant
     Dosage: 300 MILLIGRAM, QD
     Route: 048
     Dates: start: 202312

REACTIONS (8)
  - Thrombosis [Unknown]
  - Peripheral swelling [Unknown]
  - Red blood cell count decreased [Unknown]
  - Blood sodium decreased [Unknown]
  - Dermatitis contact [Unknown]
  - Application site erythema [Unknown]
  - Abdominal pain upper [Unknown]
  - Catheter site pain [Unknown]

NARRATIVE: CASE EVENT DATE: 20231201
